FAERS Safety Report 9091339 (Version 2)
Quarter: 2013Q2

REPORT INFORMATION
  Report Type: Spontaneous
  Country: IT (occurrence: IT)
  Receive Date: 20130131
  Receipt Date: 20130405
  Transmission Date: 20140414
  Serious: Yes (Other)
  Sender: FDA-Public Use
  Company Number: IT-JNJFOC-20130113735

PATIENT
  Age: 77 Year
  Sex: Female

DRUGS (5)
  1. SIMPONI [Suspect]
     Indication: RHEUMATOID ARTHRITIS
     Route: 058
     Dates: start: 20110301, end: 20121220
  2. METHOTREXATE SODIUM [Suspect]
     Indication: RHEUMATOID ARTHRITIS
     Route: 030
     Dates: start: 19940101, end: 20121220
  3. CALCIUM LEVOFOLINATE [Concomitant]
     Route: 065
  4. TACHIPIRINA [Concomitant]
     Route: 065
  5. MEDROL [Concomitant]
     Route: 065

REACTIONS (1)
  - Tuberculosis [Recovered/Resolved]
